FAERS Safety Report 10011940 (Version 1)
Quarter: 2014Q1

REPORT INFORMATION
  Report Type: Spontaneous
  Country: US (occurrence: US)
  Receive Date: 20140314
  Receipt Date: 20140314
  Transmission Date: 20141002
  Serious: No
  Sender: FDA-Public Use
  Company Number: US-TEVA-468581USA

PATIENT
  Age: 28 Year
  Sex: Female
  Weight: 72.19 kg

DRUGS (1)
  1. PARAGARD 380A [Suspect]
     Indication: CONTRACEPTION
     Route: 015
     Dates: start: 20091216, end: 201310

REACTIONS (5)
  - Uterine leiomyoma [Not Recovered/Not Resolved]
  - Vaginal haemorrhage [Not Recovered/Not Resolved]
  - Device expulsion [Recovered/Resolved]
  - Menorrhagia [Not Recovered/Not Resolved]
  - Metrorrhagia [Not Recovered/Not Resolved]
